FAERS Safety Report 23762403 (Version 2)
Quarter: 2024Q2

REPORT INFORMATION
  Report Type: Spontaneous
  Country: JP (occurrence: JP)
  Receive Date: 20240419
  Receipt Date: 20240517
  Transmission Date: 20240716
  Serious: Yes (Other)
  Sender: FDA-Public Use
  Company Number: JP-PFIZER INC-PV202400050172

PATIENT
  Age: 18 Year
  Sex: Male

DRUGS (1)
  1. XELJANZ [Suspect]
     Active Substance: TOFACITINIB CITRATE
     Indication: Colitis ulcerative
     Dosage: 2 DF, 2X/DAY
     Route: 048
     Dates: start: 20240410, end: 20240412

REACTIONS (3)
  - Autoimmune pancreatitis [Recovered/Resolved]
  - Disease recurrence [Recovered/Resolved]
  - Amylase increased [Recovered/Resolved]
